FAERS Safety Report 6931718-4 (Version None)
Quarter: 2010Q3

REPORT INFORMATION
  Report Type: 
  Country: None (occurrence: None)
  Receive Date: 20100812
  Receipt Date: 20090401
  Transmission Date: 20110219
  Serious: No
  Sender: FDA-Public Use
  Company Number: 2009-01075

PATIENT
  Age: 36 Year
  Sex: Female
  Weight: 61.6892 kg

DRUGS (1)
  1. ZICAM COLD REMEDY GEL SWABS [Suspect]
     Dosage: 2 DOSES X 1 DAY
     Dates: start: 20090312, end: 20090313

REACTIONS (2)
  - AGEUSIA [None]
  - ANOSMIA [None]
